FAERS Safety Report 9437207 (Version 2)
Quarter: 2013Q3

REPORT INFORMATION
  Report Type: Report from Study
  Country: AU (occurrence: AU)
  Receive Date: 20130802
  Receipt Date: 20130905
  Transmission Date: 20140515
  Serious: Yes (Other)
  Sender: FDA-Public Use
  Company Number: PHHY2010AU093860

PATIENT
  Age: 72 Year
  Sex: Female
  Weight: 75 kg

DRUGS (10)
  1. ACLASTA [Suspect]
     Dosage: 5 MG
     Route: 042
     Dates: start: 20090508
  2. ACLASTA [Suspect]
     Dosage: 5 MG
     Route: 042
     Dates: start: 20100622
  3. ACLASTA [Suspect]
     Dosage: 5 MG
     Route: 042
     Dates: start: 20110704
  4. ACLASTA [Suspect]
     Dosage: 5 MG
     Route: 042
     Dates: start: 20120727
  5. ACLASTA [Suspect]
     Dosage: 5 MG
     Route: 042
     Dates: start: 20130729
  6. VALIUM [Concomitant]
     Dosage: 2.5 MG, UNK
  7. DOTHEP [Concomitant]
     Dosage: UNK
  8. CRESTOR [Concomitant]
     Dosage: UNK
  9. MOBIC [Concomitant]
     Dosage: UNK
  10. PARIET [Concomitant]
     Dosage: UNK

REACTIONS (4)
  - Presyncope [Recovered/Resolved]
  - Panic attack [Recovered/Resolved]
  - Blood pressure systolic increased [Recovered/Resolved]
  - Vein disorder [Recovered/Resolved]
